FAERS Safety Report 6191115-9 (Version None)
Quarter: 2009Q2

REPORT INFORMATION
  Report Type: 
  Country: None (occurrence: None)
  Receive Date: 20090515
  Receipt Date: 20090512
  Transmission Date: 20091009
  Serious: Yes (Hospitalization)
  Sender: FDA-Public Use
  Company Number: AT-WYE-G03679509

PATIENT
  Age: 45 Year
  Sex: Male

DRUGS (3)
  1. EFFEXOR XR [Suspect]
     Dosage: 150 MG PER DAY
     Dates: start: 20090317, end: 20090322
  2. COLOFAC [Concomitant]
     Dosage: 400 MG PER DAY
  3. LORAZEPAM [Concomitant]
     Dosage: 1.5 MG PER DAY
     Dates: start: 20090316, end: 20090405

REACTIONS (1)
  - ROSACEA [None]
